FAERS Safety Report 7415227-4 (Version None)
Quarter: 2011Q2

REPORT INFORMATION
  Report Type: 
  Country: None (occurrence: None)
  Receive Date: 20110414
  Receipt Date: 20110411
  Transmission Date: 20111010
  Serious: Yes (Death, Hospitalization)
  Sender: FDA-Public Use
  Company Number: PHHY2011EC29544

PATIENT
  Age: 75 Year
  Sex: Male

DRUGS (5)
  1. LASIX [Concomitant]
     Indication: POLYURIA
     Dosage: 20 MG, EVERY SECOND DAY
     Route: 048
  2. TEGRETOL [Concomitant]
     Indication: EPILEPSY
     Dosage: 500 MG, DAILY
     Route: 048
  3. DIOVAN [Suspect]
     Indication: HYPERTENSION
     Dosage: 80 MG, DAILY
     Route: 048
  4. LEPONEX [Concomitant]
     Indication: SCHIZOPHRENIA
     Route: 048
  5. SINEMET [Concomitant]
     Indication: PARKINSON'S DISEASE
     Route: 048

REACTIONS (4)
  - CARDIO-RESPIRATORY ARREST [None]
  - VOMITING [None]
  - MYOCARDIAL INFARCTION [None]
  - GASTROENTERITIS VIRAL [None]
